FAERS Safety Report 4625124-5 (Version None)
Quarter: 2005Q2

REPORT INFORMATION
  Report Type: 
  Country: None (occurrence: None)
  Receive Date: 20050401
  Receipt Date: 20050318
  Transmission Date: 20051028
  Serious: Yes (Other)
  Sender: FDA-Public Use
  Company Number: US-GLAXOSMITHKLINE-A0550355A

PATIENT
  Age: 61 Year
  Sex: Male

DRUGS (2)
  1. NICORETTE [Suspect]
     Route: 002
     Dates: start: 20030101
  2. NICORETTE [Suspect]
     Dosage: 4MG SEE DOSAGE TEXT
     Route: 002

REACTIONS (5)
  - BLOOD GLUCOSE INCREASED [None]
  - CEREBROVASCULAR ACCIDENT [None]
  - DRUG ABUSER [None]
  - MENINGITIS [None]
  - SINUSITIS [None]
